FAERS Safety Report 13812758 (Version 1)
Quarter: 2017Q3

REPORT INFORMATION
  Report Type: Report from Study
  Country: US (occurrence: US)
  Receive Date: 20170730
  Receipt Date: 20170730
  Transmission Date: 20171127
  Serious: Yes (Other)
  Sender: FDA-Public Use
  Company Number: US-TEVA-792106USA

PATIENT
  Age: 69 Year
  Sex: Male

DRUGS (1)
  1. VORICONAZOLE. [Suspect]
     Active Substance: VORICONAZOLE
     Indication: FUNGAL INFECTION
     Route: 065

REACTIONS (3)
  - Mental status changes [Recovered/Resolved]
  - Delirium [Recovered/Resolved]
  - Headache [Recovered/Resolved]
